FAERS Safety Report 24542945 (Version 1)
Quarter: 2024Q4

REPORT INFORMATION
  Report Type: Spontaneous
  Country: US (occurrence: US)
  Receive Date: 20241024
  Receipt Date: 20241024
  Transmission Date: 20250115
  Serious: Yes (Other)
  Sender: BRISTOL-MYERS SQUIBB COMPANY
  Company Number: US-BRISTOL-MYERS SQUIBB COMPANY-2024-164604

PATIENT
  Age: 72 Year
  Sex: Male

DRUGS (1)
  1. POMALYST [Suspect]
     Active Substance: POMALIDOMIDE
     Indication: Plasma cell myeloma
     Dosage: DOSE : 4 MG;     FREQ : ONE CAPSULE ONCE DAILY AT BEDTIME FOR 21 DAYS ON AND 7 DAYS OFF
     Route: 048
     Dates: start: 20240802, end: 20240919

REACTIONS (6)
  - Dehydration [Unknown]
  - Hiccups [Unknown]
  - Plasma cell myeloma [Unknown]
  - Drug intolerance [Unknown]
  - Brain fog [Unknown]
  - Asthenia [Unknown]

NARRATIVE: CASE EVENT DATE: 20240912
